FAERS Safety Report 6478865-1 (Version None)
Quarter: 2009Q4

REPORT INFORMATION
  Report Type: 
  Country: None (occurrence: None)
  Receive Date: 20091207
  Receipt Date: 20091125
  Transmission Date: 20100525
  Serious: Yes (Hospitalization)
  Sender: FDA-Public Use
  Company Number: JP-MILLENNIUM PHARMACEUTICALS, INC.-2009-04982

PATIENT

DRUGS (11)
  1. VELCADE [Suspect]
     Indication: MULTIPLE MYELOMA
     Dosage: 1.78 MG, UNK
     Route: 042
     Dates: start: 20090914, end: 20090924
  2. VELCADE [Suspect]
     Dosage: 1.75 MG, UNK
     Route: 042
     Dates: start: 20091005, end: 20091015
  3. VELCADE [Suspect]
     Dosage: 1.71 MG, UNK
     Route: 042
     Dates: start: 20091030, end: 20091106
  4. VELCADE [Suspect]
     Dosage: 1.67 MG, UNK
     Route: 042
     Dates: start: 20091109, end: 20091123
  5. MELPHALAN [Suspect]
     Indication: MULTIPLE MYELOMA
     Dosage: 9 MG/M2, UNK
     Route: 048
     Dates: start: 20090914, end: 20091102
  6. PREDNISONE [Suspect]
     Indication: MULTIPLE MYELOMA
     Dosage: 80 MG, UNK
     Route: 048
     Dates: start: 20090914, end: 20090917
  7. PREDNISONE [Suspect]
     Dosage: 75 MG, UNK
     Route: 048
     Dates: start: 20091030, end: 20091102
  8. PREDNISONE [Suspect]
     Dosage: 30 MG, UNK
     Route: 048
     Dates: start: 20090918, end: 20091103
  9. PREDNISONE [Suspect]
     Dosage: 20 MG, UNK
     Route: 048
     Dates: start: 20090919, end: 20091104
  10. PREDNISONE [Suspect]
     Dosage: 10 MG, UNK
     Route: 048
     Dates: start: 20090920, end: 20091105
  11. PREDNISONE [Suspect]
     Dosage: 5 MG, UNK
     Route: 048
     Dates: start: 20090921, end: 20091106

REACTIONS (1)
  - ENTEROCOLITIS [None]
